FAERS Safety Report 7815852-2 (Version None)
Quarter: 2011Q4

REPORT INFORMATION
  Report Type: 
  Country: None (occurrence: None)
  Receive Date: 20111014
  Receipt Date: 20111010
  Transmission Date: 20120403
  Serious: Yes (Hospitalization, Disabling, Other)
  Sender: FDA-Public Use
  Company Number: US-ABBOTT-11P-163-0862518-00

PATIENT
  Sex: Female
  Weight: 81.72 kg

DRUGS (5)
  1. NADOLOL [Concomitant]
     Indication: PRODUCT USED FOR UNKNOWN INDICATION
  2. OMEPRAZOLE [Concomitant]
     Indication: GASTRIC DISORDER
  3. UNKNOWN THYROID MEDICINE [Concomitant]
     Indication: HYPOTHYROIDISM
  4. HUMIRA [Suspect]
     Indication: RHEUMATOID ARTHRITIS
  5. MELOXICAM [Concomitant]
     Indication: RHEUMATOID ARTHRITIS

REACTIONS (5)
  - CEREBROVASCULAR ACCIDENT [None]
  - ARTHRALGIA [None]
  - FOOT DEFORMITY [None]
  - AMNESIA [None]
  - ANKLE OPERATION [None]
